FAERS Safety Report 6786839-6 (Version None)
Quarter: 2010Q2

REPORT INFORMATION
  Report Type: 
  Country: None (occurrence: None)
  Receive Date: 20100623
  Receipt Date: 20100616
  Transmission Date: 20101027
  Serious: Yes (Hospitalization)
  Sender: FDA-Public Use
  Company Number: DK-GILEAD-E2B_00000747

PATIENT
  Sex: Female

DRUGS (8)
  1. AMBRISENTAN [Suspect]
     Indication: PULMONARY ARTERIAL HYPERTENSION
     Dosage: 5MG PER DAY
     Route: 048
     Dates: start: 20100121
  2. SELOZOK [Concomitant]
     Indication: ATRIAL FIBRILLATION
     Route: 048
     Dates: end: 20100531
  3. ALLOPURINOL [Concomitant]
     Route: 048
  4. DIGOXIN [Concomitant]
     Route: 048
  5. KALEORID [Concomitant]
     Route: 048
  6. WARFARIN SODIUM [Concomitant]
     Indication: ANTICOAGULANT THERAPY
     Route: 048
  7. CENTYL [Concomitant]
     Indication: DIURETIC THERAPY
     Route: 048
     Dates: start: 20100412, end: 20100531
  8. SPIRIX [Concomitant]
     Route: 048

REACTIONS (3)
  - ANAEMIA [None]
  - RIGHT VENTRICULAR FAILURE [None]
  - SINUSITIS [None]
